FAERS Safety Report 17681379 (Version 4)
Quarter: 2020Q2

REPORT INFORMATION
  Report Type: Spontaneous
  Country: CH (occurrence: CH)
  Receive Date: 20200417
  Receipt Date: 20200514
  Transmission Date: 20200714
  Serious: Yes (Congenital Anomaly, Other)
  Sender: FDA-Public Use
  Company Number: CH-IPSEN BIOPHARMACEUTICALS, INC.-2012-8300

PATIENT
  Sex: Male
  Weight: 2.15 kg

DRUGS (2)
  1. DYSPORT [Suspect]
     Active Substance: ABOBOTULINUMTOXINA
     Dosage: 10 UNITS
     Route: 064
     Dates: start: 20111003, end: 20111003
  2. DYSPORT [Suspect]
     Active Substance: ABOBOTULINUMTOXINA
     Indication: PRODUCT USED FOR UNKNOWN INDICATION
     Dosage: 67.5 UNITS
     Route: 064
     Dates: start: 20110916, end: 20110916

REACTIONS (3)
  - Renal hypoplasia [Unknown]
  - Premature baby [Recovered/Resolved]
  - Foetal exposure during pregnancy [Unknown]

NARRATIVE: CASE EVENT DATE: 20110923
